FAERS Safety Report 13687983 (Version 1)
Quarter: 2017Q2

REPORT INFORMATION
  Report Type: Spontaneous
  Country: US (occurrence: US)
  Receive Date: 20170626
  Receipt Date: 20170626
  Transmission Date: 20170830
  Serious: Yes (Life-Threatening, Hospitalization, Other)
  Sender: FDA-Public Use
  Company Number: US-TEVA-732512USA

PATIENT
  Sex: Female

DRUGS (3)
  1. LATUDA [Interacting]
     Active Substance: LURASIDONE HYDROCHLORIDE
     Route: 048
     Dates: start: 2016
  2. LATUDA [Interacting]
     Active Substance: LURASIDONE HYDROCHLORIDE
     Route: 048
     Dates: start: 2016, end: 2016
  3. KETOCONAZOLE. [Suspect]
     Active Substance: KETOCONAZOLE
     Indication: FUNGAL INFECTION
     Dosage: UNKNOWN FORM STRENGTH
     Route: 065

REACTIONS (3)
  - Fungal infection [Unknown]
  - Anaphylactic shock [Unknown]
  - Labelled drug-drug interaction medication error [Unknown]

NARRATIVE: CASE EVENT DATE: 2016
